FAERS Safety Report 8318885-5 (Version None)
Quarter: 2012Q2

REPORT INFORMATION
  Report Type: 
  Country: None (occurrence: None)
  Receive Date: 20120427
  Receipt Date: 20120417
  Transmission Date: 20120825
  Serious: Yes (Other)
  Sender: FDA-Public Use
  Company Number: JP-PFIZER INC-2012081625

PATIENT
  Age: 80 Year
  Sex: Male

DRUGS (1)
  1. CELEBREX [Suspect]
     Dosage: 100 MG, UNK
     Route: 048
     Dates: start: 20101201, end: 20101201

REACTIONS (2)
  - DRUG ERUPTION [None]
  - LIVER DISORDER [None]
